FAERS Safety Report 9918322 (Version 4)
Quarter: 2014Q2

REPORT INFORMATION
  Report Type: Spontaneous
  Country: US (occurrence: US)
  Receive Date: 20140224
  Receipt Date: 20140613
  Transmission Date: 20141212
  Serious: Yes (Hospitalization)
  Sender: FDA-Public Use
  Company Number: US-BIOGENIDEC-2014BI014699

PATIENT
  Age: 61 Year
  Sex: Female
  Weight: 81 kg

DRUGS (6)
  1. TYSABRI [Suspect]
     Indication: MULTIPLE SCLEROSIS
     Route: 042
     Dates: start: 20080729, end: 20140127
  2. SIMVASTATIN [Concomitant]
     Route: 048
  3. GLIMEPIRIDE [Concomitant]
     Route: 048
     Dates: start: 201012
  4. METFORMIN [Concomitant]
     Route: 048
  5. LISINOPRIL [Concomitant]
     Indication: HYPERTENSION
     Route: 048
     Dates: start: 201012
  6. RANITIDINE [Concomitant]
     Indication: GASTROOESOPHAGEAL REFLUX DISEASE
     Route: 048
     Dates: start: 201211

REACTIONS (1)
  - Multiple sclerosis relapse [Not Recovered/Not Resolved]
